FAERS Safety Report 9760021 (Version 1)
Quarter: 2013Q4

REPORT INFORMATION
  Report Type: Spontaneous
  Country: US (occurrence: US)
  Receive Date: 20131216
  Receipt Date: 20131216
  Transmission Date: 20140711
  Serious: No
  Sender: FDA-Public Use
  Company Number: US-BIOGENIDEC-2013BI096376

PATIENT
  Sex: Female
  Weight: 79 kg

DRUGS (4)
  1. TECFIDERA [Suspect]
     Indication: PRODUCT USED FOR UNKNOWN INDICATION
     Route: 048
  2. FISH OIL [Concomitant]
  3. ASPIRIN EC [Concomitant]
  4. LOVASTATIN [Concomitant]

REACTIONS (7)
  - Heart rate increased [Recovered/Resolved]
  - Flatulence [Unknown]
  - Abdominal distension [Unknown]
  - Flushing [Unknown]
  - Pruritus [Unknown]
  - Abdominal discomfort [Unknown]
  - Abdominal pain [Unknown]
